FAERS Safety Report 8188930-9 (Version None)
Quarter: 2012Q1

REPORT INFORMATION
  Report Type: 
  Country: None (occurrence: None)
  Receive Date: 20120306
  Receipt Date: 20120227
  Transmission Date: 20120608
  Serious: Yes (Death, Other)
  Sender: FDA-Public Use
  Company Number: US-ROCHE-1033301

PATIENT
  Sex: Female

DRUGS (7)
  1. FOLIC ACID [Concomitant]
     Route: 048
     Dates: start: 20070213
  2. AVASTIN [Suspect]
     Indication: NON-SMALL CELL LUNG CANCER
     Route: 042
     Dates: start: 20070215, end: 20070220
  3. MORPHINE SULFATE [Concomitant]
     Indication: PAIN
     Route: 048
     Dates: start: 20070419
  4. TARCEVA [Suspect]
     Indication: NON-SMALL CELL LUNG CANCER
     Route: 048
     Dates: start: 20070301, end: 20070501
  5. PEMETREXED [Suspect]
     Indication: NON-SMALL CELL LUNG CANCER
     Route: 042
     Dates: start: 20070215, end: 20070419
  6. ATIVAN [Concomitant]
     Indication: VOMITING
     Route: 048
     Dates: start: 20070119
  7. LEXAPRO [Concomitant]
     Indication: DEPRESSION
     Route: 048
     Dates: start: 20070419

REACTIONS (7)
  - DISEASE PROGRESSION [None]
  - ASTHENIA [None]
  - HYPOPHAGIA [None]
  - DYSPNOEA [None]
  - NAUSEA [None]
  - MALIGNANT PLEURAL EFFUSION [None]
  - FATIGUE [None]
